FAERS Safety Report 16771432 (Version 1)
Quarter: 2019Q3

REPORT INFORMATION
  Report Type: Spontaneous
  Country: US (occurrence: US)
  Receive Date: 20190904
  Receipt Date: 20190904
  Transmission Date: 20191005
  Serious: No
  Sender: FDA-Public Use
  Company Number: US-BAYER-2019-161336

PATIENT

DRUGS (3)
  1. ALEVE [Suspect]
     Active Substance: NAPROXEN SODIUM
     Dosage: UNK
  2. NEURONTIN [Concomitant]
     Active Substance: GABAPENTIN
     Dosage: 2 DF, HS (2 CAPS ORALLY AT NITE)
     Route: 048
  3. LYRICA [Concomitant]
     Active Substance: PREGABALIN
     Indication: NEUROPATHY PERIPHERAL
     Dosage: 1 CAPSULE BID

REACTIONS (2)
  - Drug hypersensitivity [None]
  - Drug eruption [None]
